FAERS Safety Report 6581401-2 (Version None)
Quarter: 2010Q1

REPORT INFORMATION
  Report Type: 
  Country: None (occurrence: None)
  Receive Date: 20100215
  Receipt Date: 20100204
  Transmission Date: 20100710
  Serious: Yes (Hospitalization)
  Sender: FDA-Public Use
  Company Number: US-JNJFOC-20100101101

PATIENT
  Age: 95 Year
  Sex: Female
  Weight: 52.16 kg

DRUGS (9)
  1. TYLENOL (CAPLET) [Suspect]
     Route: 048
  2. TYLENOL (CAPLET) [Suspect]
     Indication: ARTHRITIS
     Route: 048
  3. PRILOSEC [Concomitant]
     Indication: GASTROOESOPHAGEAL REFLUX DISEASE
  4. COZAAR [Concomitant]
     Indication: HYPERTENSION
  5. LEVOTHYROXINE SODIUM [Concomitant]
     Indication: THYROID DISORDER
  6. METOPROLOL TARTRATE [Concomitant]
     Indication: HYPERTENSION
  7. M.V.I. [Concomitant]
     Indication: NUTRITIONAL SUPPORT
  8. CALCIUM [Concomitant]
     Indication: NUTRITIONAL SUPPORT
  9. ASPIRIN [Concomitant]
     Indication: CARDIOVASCULAR EVENT PROPHYLAXIS

REACTIONS (2)
  - CEREBROVASCULAR ACCIDENT [None]
  - PRODUCT QUALITY ISSUE [None]
